FAERS Safety Report 8064422-2 (Version None)
Quarter: 2012Q1

REPORT INFORMATION
  Report Type: 
  Country: None (occurrence: None)
  Receive Date: 20120123
  Receipt Date: 20120119
  Transmission Date: 20120608
  Serious: Yes (Death)
  Sender: FDA-Public Use
  Company Number: CHPA2012US001634

PATIENT
  Age: 52 Year
  Sex: Male

DRUGS (4)
  1. EXCEDRIN EXTRA STRENGTH TABLETS [Suspect]
     Indication: PAIN
     Dosage: UNK, PRN
     Route: 048
  2. ASPIRIN [Suspect]
     Dosage: 81 MG, UNK
     Route: 048
     Dates: end: 20110906
  3. OXYCODONE AND ACETAMINOPHEN [Suspect]
     Dosage: UNK
     Route: 048
     Dates: end: 20110906
  4. ACETYLSALICYLIC ACID SRT [Suspect]
     Dosage: 81 MG, UNK
     Route: 048
     Dates: end: 20110906

REACTIONS (3)
  - DRUG ADMINISTRATION ERROR [None]
  - CARDIOVASCULAR DISORDER [None]
  - THROMBOSIS [None]
